FAERS Safety Report 15801546 (Version 1)
Quarter: 2019Q1

REPORT INFORMATION
  Report Type: Spontaneous
  Country: DE (occurrence: DE)
  Receive Date: 20190109
  Receipt Date: 20190109
  Transmission Date: 20190417
  Serious: Yes (Life-Threatening, Hospitalization)
  Sender: FDA-Public Use
  Company Number: DE-MYLANLABS-2019M1001111

PATIENT
  Age: 12 Year
  Sex: Female

DRUGS (5)
  1. AMIODARONE [Suspect]
     Active Substance: AMIODARONE
     Indication: TACHYCARDIA
  2. ACEBUTOLOL [Concomitant]
     Active Substance: ACEBUTOLOL
     Indication: SUPRAVENTRICULAR TACHYCARDIA
     Route: 065
  3. ADENOSINE. [Suspect]
     Active Substance: ADENOSINE
     Indication: CARDIOVERSION
     Dosage: 0.05 MILLIGRAM/KILOGRAM
     Route: 050
  4. ADENOSINE. [Suspect]
     Active Substance: ADENOSINE
     Dosage: 0.1 MILLIGRAM/KILOGRAM
     Route: 050
  5. AMIODARONE [Suspect]
     Active Substance: AMIODARONE
     Indication: ATRIAL FIBRILLATION
     Route: 065

REACTIONS (4)
  - Tachycardia [Recovered/Resolved]
  - Drug ineffective [Unknown]
  - Cardiac failure [Recovered/Resolved]
  - Atrial fibrillation [Recovered/Resolved]
